FAERS Safety Report 11327302 (Version 1)
Quarter: 2015Q3

REPORT INFORMATION
  Report Type: Spontaneous
  Country: US (occurrence: None)
  Receive Date: 20150730
  Receipt Date: 20150730
  Transmission Date: 20151125
  Serious: Yes (Hospitalization)
  Sender: FDA-Public Use
  Company Number: None

PATIENT
  Age: 22 Year
  Sex: Male

DRUGS (8)
  1. EPINEPHRINE. [Concomitant]
     Active Substance: EPINEPHRINE
  2. VANCOMYCIN [Concomitant]
     Active Substance: VANCOMYCIN
  3. PHENYLEPHRINE [Concomitant]
     Active Substance: PHENYLEPHRINE\PHENYLEPHRINE HYDROCHLORIDE
  4. VASOPRESSIN. [Concomitant]
     Active Substance: VASOPRESSIN
  5. RIOCIGUAT [Suspect]
     Active Substance: RIOCIGUAT
     Indication: HYPERTENSION
     Route: 048
     Dates: start: 20150203, end: 20150210
  6. FENTANYL. [Concomitant]
     Active Substance: FENTANYL
  7. SILDENAFIL. [Concomitant]
     Active Substance: SILDENAFIL
  8. MEROPENEM. [Concomitant]
     Active Substance: MEROPENEM

REACTIONS (4)
  - Pulmonary hypertension [None]
  - Cardiac arrest [None]
  - Pulmonary alveolar haemorrhage [None]
  - Pulseless electrical activity [None]

NARRATIVE: CASE EVENT DATE: 20150210
